FAERS Safety Report 17802109 (Version 1)
Quarter: 2020Q2

REPORT INFORMATION
  Report Type: Spontaneous
  Country: US (occurrence: US)
  Receive Date: 20200519
  Receipt Date: 20200519
  Transmission Date: 20200714
  Serious: No
  Sender: FDA-Public Use
  Company Number: US-PFIZER INC-2020196157

PATIENT
  Age: 57 Year
  Sex: Female
  Weight: 73.48 kg

DRUGS (2)
  1. NIFEDIPINE. [Suspect]
     Active Substance: NIFEDIPINE
     Dosage: 60 MG
     Dates: start: 20200129
  2. NIFEDIPINE. [Suspect]
     Active Substance: NIFEDIPINE
     Indication: ESSENTIAL HYPERTENSION
     Dosage: 60 MG
     Route: 048
     Dates: start: 20181212, end: 201901

REACTIONS (1)
  - Drug ineffective [Unknown]
